FAERS Safety Report 7941708 (Version 2)
Quarter: 2012Q4

REPORT INFORMATION
  Report Type: 
  Country: US (occurrence: US)
  Receive Date: 20110512
  Receipt Date: 20120910
  Transmission Date: 20130627
  Serious: Yes (Hospitalization)
  Sender: FDA-Public Use
  Company Number: US-US-EMD SERONO, INC.-7057950

PATIENT
  Age: 64 None
  Sex: Female
  Weight: 52 kg

DRUGS (1)
  1. REBIF [Suspect]
     Indication: MULTIPLE SCLEROSIS
     Route: 058
     Dates: start: 20021107

REACTIONS (4)
  - Tremor [Recovered/Resolved]
  - Dyskinesia [Not Recovered/Not Resolved]
  - Influenza like illness [Unknown]
  - Injection site erythema [Unknown]
